FAERS Safety Report 8155587-2 (Version None)
Quarter: 2012Q1

REPORT INFORMATION
  Report Type: 
  Country: None (occurrence: None)
  Receive Date: 20120222
  Receipt Date: 20120214
  Transmission Date: 20120608
  Serious: Yes (Hospitalization, Other)
  Sender: FDA-Public Use
  Company Number: PHHY2012DE009196

PATIENT
  Weight: 86 kg

DRUGS (10)
  1. DIOVAN HCT [Suspect]
     Indication: ESSENTIAL HYPERTENSION
     Dosage: 160 MG, 12.5 MG PER DAY
     Route: 048
     Dates: start: 20060131
  2. SAXAGLIPTIN [Concomitant]
     Indication: TYPE 2 DIABETES MELLITUS
     Dosage: 5 MG, PER DAY
     Route: 048
     Dates: start: 20110505, end: 20111118
  3. AMLODIPINE [Concomitant]
     Indication: ESSENTIAL HYPERTENSION
     Dosage: 5 MG, PER DAY
     Dates: start: 20080828
  4. BETA BLOCKING AGENTS [Concomitant]
  5. RASILEZ [Suspect]
     Indication: HYPERTENSION
     Dosage: 150 MG, PER DAY
     Route: 048
     Dates: start: 20090211, end: 20090618
  6. PLATELET AGGREGATION INHIBITORS [Concomitant]
  7. BISOMERCK [Concomitant]
     Indication: ESSENTIAL HYPERTENSION
     Dosage: 10 MG, PER DAY
     Dates: start: 20080828
  8. PRAVASTATIN [Concomitant]
     Indication: DYSLIPIDAEMIA
     Dosage: 10 MG, PER DAY
     Route: 048
     Dates: start: 20090618
  9. CALCIUM CHANNEL BLOCKERS [Concomitant]
  10. AMLODIPINE BESYLATE [Concomitant]
     Indication: HYPERTENSION
     Dosage: 10 MG, PER DAY
     Route: 048
     Dates: start: 20101026

REACTIONS (4)
  - ANGINA PECTORIS [None]
  - CORONARY ARTERY DISEASE [None]
  - DIABETES MELLITUS [None]
  - CORONARY ARTERY STENOSIS [None]
